FAERS Safety Report 10593853 (Version 1)
Quarter: 2014Q4

REPORT INFORMATION
  Report Type: Spontaneous
  Country: DE (occurrence: DE)
  Receive Date: 20141119
  Receipt Date: 20141119
  Transmission Date: 20150529
  Serious: Yes (Hospitalization)
  Sender: FDA-Public Use
  Company Number: DE-TEVA-523028GER

PATIENT
  Age: 5 Decade
  Sex: Male

DRUGS (1)
  1. SIMVASTATIN-RATIOPHARM 20 MG TABLETTEN [Suspect]
     Active Substance: SIMVASTATIN
     Route: 048

REACTIONS (3)
  - Palpitations [Unknown]
  - Nausea [Unknown]
  - Circulatory collapse [Unknown]
